FAERS Safety Report 7817463-1 (Version None)
Quarter: 2011Q4

REPORT INFORMATION
  Report Type: 
  Country: None (occurrence: None)
  Receive Date: 20111012
  Receipt Date: 20110928
  Transmission Date: 20120403
  Serious: Yes (Hospitalization)
  Sender: FDA-Public Use
  Company Number: 2011AP002251

PATIENT

DRUGS (1)
  1. METFORMIN HCL [Suspect]
     Indication: TYPE 2 DIABETES MELLITUS

REACTIONS (3)
  - RENAL FAILURE ACUTE [None]
  - LACTIC ACIDOSIS [None]
  - DRUG LEVEL INCREASED [None]
